FAERS Safety Report 10348895 (Version 2)
Quarter: 2014Q3

REPORT INFORMATION
  Report Type: Spontaneous
  Country: JP (occurrence: None)
  Receive Date: 20140725
  Receipt Date: 20140828
  Transmission Date: 20150326
  Serious: Yes (Life-Threatening)
  Sender: FDA-Public Use
  Company Number: 2447500

PATIENT
  Age: 35 Year
  Sex: Female
  Weight: 52 kg

DRUGS (6)
  1. LIDOCAINE. [Concomitant]
     Active Substance: LIDOCAINE
  2. FENTANYL. [Concomitant]
     Active Substance: FENTANYL
  3. BUPIVACAINE HYDROCHLORIDE MONOHYDRATE [Concomitant]
  4. DEXMEDETOMIDINE HYDROCHLORIDE [Suspect]
     Active Substance: DEXMEDETOMIDINE HYDROCHLORIDE
     Indication: SEDATION
     Dosage: 13:51-14:01
     Route: 042
     Dates: start: 20140611, end: 20140611
  5. PROPOFOL. [Concomitant]
     Active Substance: PROPOFOL
  6. CEFAZOLIN SODIUM. [Concomitant]
     Active Substance: CEFAZOLIN SODIUM

REACTIONS (2)
  - Oxygen saturation decreased [None]
  - Glossoptosis [None]

NARRATIVE: CASE EVENT DATE: 20140611
